FAERS Safety Report 5194802-4 (Version None)
Quarter: 2006Q4

REPORT INFORMATION
  Report Type: 
  Country: None (occurrence: None)
  Receive Date: 20061229
  Receipt Date: 20041019
  Transmission Date: 20070319
  Serious: Yes (Other)
  Sender: FDA-Public Use
  Company Number: US-BRISTOL-MYERS SQUIBB COMPANY-12738506

PATIENT
  Age: 47 Year
  Sex: Male
  Weight: 86 kg

DRUGS (1)
  1. TEQUIN [Suspect]
     Indication: PNEUMONIA STREPTOCOCCAL
     Route: 048
     Dates: start: 20010301, end: 20010301

REACTIONS (1)
  - DIABETES MELLITUS INSULIN-DEPENDENT [None]
